FAERS Safety Report 9409443 (Version 1)
Quarter: 2013Q3

REPORT INFORMATION
  Report Type: Spontaneous
  Country: US (occurrence: US)
  Receive Date: 20130719
  Receipt Date: 20130719
  Transmission Date: 20140515
  Serious: No
  Sender: FDA-Public Use
  Company Number: US-MYLANLABS-2013S1010418

PATIENT
  Age: 52 Year
  Sex: Female

DRUGS (3)
  1. VALSARTAN AND HYDROCHLOROTHIAZIDE TABLETS [Suspect]
     Indication: BLOOD PRESSURE
     Route: 048
     Dates: start: 20130101
  2. VALSARTAN AND HYDROCHLOROTHIAZIDE TABLETS [Suspect]
     Indication: HYPERTENSION
     Route: 048
     Dates: start: 20130101
  3. SERTRALINE [Concomitant]
     Dosage: ONE-HALF OF 50MG TABLET.
     Route: 048

REACTIONS (2)
  - Drug ineffective [Recovered/Resolved]
  - Micturition disorder [Recovered/Resolved]
